FAERS Safety Report 10548559 (Version 3)
Quarter: 2014Q4

REPORT INFORMATION
  Report Type: Spontaneous
  Country: SK (occurrence: SK)
  Receive Date: 20141028
  Receipt Date: 20141117
  Transmission Date: 20150529
  Serious: Yes (Hospitalization)
  Sender: FDA-Public Use
  Company Number: SK-PFIZER INC-2014291831

PATIENT
  Age: 14 Year
  Sex: Female

DRUGS (1)
  1. IBUPROFEN. [Suspect]
     Active Substance: IBUPROFEN
     Indication: SUICIDE ATTEMPT
     Dosage: 19200 MG, UNK

REACTIONS (5)
  - Transaminases increased [Unknown]
  - Somnolence [Unknown]
  - Overdose [Unknown]
  - Vomiting [Unknown]
  - Suicide attempt [Unknown]
